FAERS Safety Report 5242495-X (Version None)
Quarter: 2007Q1

REPORT INFORMATION
  Report Type: 
  Country: None (occurrence: None)
  Receive Date: 20070221
  Receipt Date: 20070216
  Transmission Date: 20070707
  Serious: Yes (Other)
  Sender: FDA-Public Use
  Company Number: IN-AVENTIS-200710475EU

PATIENT
  Age: 40 Year
  Sex: Female

DRUGS (46)
  1. ENOXAPARIN SODIUM [Suspect]
     Route: 058
     Dates: start: 20070112, end: 20070114
  2. VOLTAREN [Concomitant]
     Dates: start: 20070106, end: 20070112
  3. ZOSTRUM                            /00201801/ [Concomitant]
     Indication: ANTIBIOTIC PROPHYLAXIS
     Dates: start: 20070112, end: 20070112
  4. ZOSTRUM                            /00201801/ [Concomitant]
     Dates: start: 20070114, end: 20070121
  5. ZOSTRUM                            /00201801/ [Concomitant]
     Dates: start: 20070113, end: 20070113
  6. ZOSTRUM                            /00201801/ [Concomitant]
     Dates: start: 20070127
  7. AMIKACIN [Concomitant]
     Indication: ANTIBIOTIC PROPHYLAXIS
     Dates: start: 20070113, end: 20070114
  8. AMIKACIN [Concomitant]
     Dates: start: 20070113, end: 20070113
  9. AMIKACIN [Concomitant]
     Dates: start: 20070113, end: 20070113
  10. TRAMADOL HCL [Concomitant]
     Dates: start: 20070113, end: 20070114
  11. TRAMADOL HCL [Concomitant]
     Dates: start: 20070115, end: 20070115
  12. TRAMADOL HCL [Concomitant]
     Dates: start: 20070113, end: 20070113
  13. TRAMADOL HCL [Concomitant]
     Dates: start: 20070127, end: 20070127
  14. MIDAZ [Concomitant]
     Indication: ANAESTHESIA
     Dates: start: 20070113, end: 20070113
  15. PENZYL [Concomitant]
     Indication: ANAESTHESIA
     Dates: start: 20070113, end: 20070113
  16. GLYCOPYRROLATE                     /00196201/ [Concomitant]
     Indication: PREMEDICATION
     Dates: start: 20070113, end: 20070113
  17. PROPOFOL [Concomitant]
     Indication: ANAESTHESIA
     Dates: start: 20070113, end: 20070113
  18. SCOLINE [Concomitant]
     Indication: ANAESTHESIA
     Dates: start: 20070113, end: 20070113
  19. RANTAC [Concomitant]
     Indication: PREMEDICATION
     Dates: start: 20070113, end: 20070113
  20. RANTAC [Concomitant]
     Dates: start: 20070114, end: 20070116
  21. RANTAC [Concomitant]
     Dates: start: 20070123
  22. RANTAC [Concomitant]
     Dates: start: 20070113, end: 20070113
  23. RANTAC [Concomitant]
     Dates: start: 20070114, end: 20070116
  24. RANTAC [Concomitant]
     Dates: start: 20070123
  25. PERISET [Concomitant]
     Indication: PREMEDICATION
     Dates: start: 20070113, end: 20070113
  26. HYDROCORTISONE [Concomitant]
     Dates: start: 20070113, end: 20070113
  27. HYDROCORTISONE [Concomitant]
     Dates: start: 20070117, end: 20070118
  28. HYDROCORTISONE [Concomitant]
     Dates: start: 20070117, end: 20070118
  29. HYDROCORTISONE [Concomitant]
     Dates: start: 20070119, end: 20070119
  30. HYDROCORTISONE [Concomitant]
     Dates: start: 20070120, end: 20070121
  31. HYDROCORTISONE [Concomitant]
     Dates: start: 20070122, end: 20070122
  32. AVIL [Concomitant]
     Dates: start: 20070113, end: 20070113
  33. NEOSTIGMINE [Concomitant]
     Indication: ANAESTHESIA
     Dates: start: 20070113, end: 20070113
  34. VECURONIUM BROMIDE [Concomitant]
     Indication: ANAESTHESIA
     Dates: start: 20070113, end: 20070113
  35. CIPROFLOXACIN [Concomitant]
     Indication: ANTIBIOTIC PROPHYLAXIS
     Route: 042
     Dates: start: 20070116, end: 20070116
  36. POTASSIUM CHLORIDE [Concomitant]
     Dates: start: 20070118, end: 20070118
  37. LACTULOSE [Concomitant]
     Indication: CONSTIPATION
     Dates: start: 20070116, end: 20070116
  38. FRAGMIN [Concomitant]
     Dates: start: 20070117, end: 20070120
  39. FRAGMIN [Concomitant]
     Dates: start: 20070121, end: 20070121
  40. FRAGMIN [Concomitant]
     Dates: start: 20070122, end: 20070122
  41. PANTOPRAZOLE SODIUM [Concomitant]
     Dates: start: 20070119, end: 20070120
  42. METROGYL                           /00012501/ [Concomitant]
     Indication: ANTIBIOTIC PROPHYLAXIS
     Dates: start: 20070120, end: 20070122
  43. TAXIM                              /00497601/ [Concomitant]
     Indication: ANTIBIOTIC PROPHYLAXIS
     Dates: start: 20070123, end: 20070126
  44. VITCOFOL [Concomitant]
     Route: 048
     Dates: start: 20070123
  45. MOVON-P [Concomitant]
     Route: 048
     Dates: start: 20070123
  46. CREMAFFIN [Concomitant]
     Dates: start: 20070123

REACTIONS (4)
  - HEPATIC ENZYME INCREASED [None]
  - HYPOTENSION [None]
  - RENAL FAILURE ACUTE [None]
  - WOUND TREATMENT [None]
